FAERS Safety Report 26001965 (Version 1)
Quarter: 2025Q4

REPORT INFORMATION
  Report Type: Spontaneous
  Country: EU (occurrence: EU)
  Receive Date: 20251105
  Receipt Date: 20251105
  Transmission Date: 20260117
  Serious: Yes (Hospitalization, Other)
  Sender: GILEAD
  Company Number: EU-GILEAD-2025-0734012

PATIENT
  Age: 43 Year
  Sex: Female
  Weight: 58 kg

DRUGS (6)
  1. TRODELVY [Suspect]
     Active Substance: SACITUZUMAB GOVITECAN-HZIY
     Indication: Breast cancer
     Dosage: C1D1
     Route: 065
     Dates: start: 20250908
  2. TRODELVY [Suspect]
     Active Substance: SACITUZUMAB GOVITECAN-HZIY
     Dosage: C1D8
     Route: 065
     Dates: start: 20250915
  3. EMEND [Concomitant]
     Active Substance: APREPITANT
     Dosage: 125 MG D1
     Dates: start: 20250908
  4. EMEND [Concomitant]
     Active Substance: APREPITANT
     Dosage: 80 MG D2-D3
     Dates: start: 20250908
  5. ONDANSETRON [Concomitant]
     Active Substance: ONDANSETRON
  6. FILGRASTIM [Concomitant]
     Active Substance: FILGRASTIM
     Dosage: 30, 48 HOURS AFTER CHEMOTHERAPY

REACTIONS (1)
  - Toxic skin eruption [Recovered/Resolved]

NARRATIVE: CASE EVENT DATE: 20250916
